FAERS Safety Report 5446781-X (Version None)
Quarter: 2007Q3

REPORT INFORMATION
  Report Type: 
  Country: None (occurrence: None)
  Receive Date: 20070907
  Receipt Date: 20070827
  Transmission Date: 20080115
  Serious: Yes (Death, Life-Threatening, Hospitalization, Other)
  Sender: FDA-Public Use
  Company Number: US-PFIZER INC-2007072055

PATIENT
  Sex: Male

DRUGS (3)
  1. XALATAN [Suspect]
  2. VIAGRA [Suspect]
     Indication: ERECTILE DYSFUNCTION
  3. ALL OTHER THERAPEUTIC PRODUCTS [Concomitant]
     Indication: BLOOD PRESSURE

REACTIONS (6)
  - CARDIAC OPERATION [None]
  - DEATH [None]
  - DYSPNOEA [None]
  - MALAISE [None]
  - MYOCARDIAL INFARCTION [None]
  - PULMONARY OEDEMA [None]
